FAERS Safety Report 9133180 (Version 1)
Quarter: 2013Q1

REPORT INFORMATION
  Report Type: Spontaneous
  Country: NL (occurrence: NL)
  Receive Date: 20130116
  Receipt Date: 20130116
  Transmission Date: 20140127
  Serious: Yes (Death, Hospitalization, Other)
  Sender: FDA-Public Use
  Company Number: NL-ROXANE LABORATORIES, INC.-2013-RO-00040RO

PATIENT
  Age: 75 Year
  Sex: Female

DRUGS (6)
  1. PREDNISONE [Suspect]
     Indication: AUTOIMMUNE HEPATITIS
  2. AZATHIOPRINE [Suspect]
     Indication: AUTOIMMUNE HEPATITIS
  3. CALCIUM CARBONATE [Suspect]
     Indication: OSTEOPOROSIS
  4. PAMIDRONATE [Suspect]
     Indication: OSTEOPOROSIS
     Route: 042
  5. VITAMIN D [Suspect]
     Indication: OSTEOPOROSIS
  6. ZOLEDRONIC ACID [Suspect]
     Indication: OSTEOPOROSIS
     Route: 042

REACTIONS (7)
  - Respiratory failure [Fatal]
  - Osteonecrosis of jaw [Unknown]
  - Candida pneumonia [Unknown]
  - Drug dependence [Unknown]
  - Malnutrition [Unknown]
  - Pseudomonas infection [Unknown]
  - Candida infection [Unknown]
